FAERS Safety Report 9349593 (Version 2)
Quarter: 2014Q1

REPORT INFORMATION
  Report Type: Spontaneous
  Country: US (occurrence: US)
  Receive Date: 20130614
  Receipt Date: 20140128
  Transmission Date: 20141002
  Serious: Yes (Hospitalization)
  Sender: FDA-Public Use
  Company Number: US-B.I. PHARMACEUTICALS,INC./RIDGEFIELD-2013-BI-16570BP

PATIENT
  Sex: Female
  Weight: 85.28 kg

DRUGS (15)
  1. PRADAXA [Suspect]
     Indication: CEREBROVASCULAR ACCIDENT PROPHYLAXIS
     Dosage: 150 MG
     Dates: start: 20101126, end: 20110421
  2. PRADAXA [Suspect]
     Indication: THROMBOSIS PROPHYLAXIS
     Dosage: 150 MG
     Dates: start: 201104, end: 20110429
  3. PRADAXA [Suspect]
     Indication: ATRIAL FIBRILLATION
  4. OMEPRAZOLE [Concomitant]
     Dosage: 20 MG
  5. SIMVASTATIN [Concomitant]
     Dosage: 40 MG
  6. SYNTHROID [Concomitant]
     Dosage: 75 MCG
  7. TYLENOL [Concomitant]
  8. VITAMIN B12 [Concomitant]
     Indication: VITAMIN B12 DEFICIENCY
     Route: 048
  9. VITAMIN D WITH MINERALS [Concomitant]
     Route: 048
  10. ALLOPURINOL [Concomitant]
     Indication: GOUT
     Dosage: 100 MG
     Route: 048
  11. AMARYL [Concomitant]
     Dosage: 1 MG
     Route: 048
  12. ASPIRIN [Concomitant]
     Dosage: 81 MG
  13. DIGOXIN [Concomitant]
     Dosage: 125 MCG
  14. FLUOXETINE [Concomitant]
     Dosage: 10 MG
     Route: 048
  15. GABAPENTIN [Concomitant]
     Dosage: 100 MG

REACTIONS (5)
  - Haemorrhage [Unknown]
  - Anaemia [Unknown]
  - Thrombocytopenia [Unknown]
  - Fall [Unknown]
  - Haematoma [Unknown]
